FAERS Safety Report 8206365-7 (Version None)
Quarter: 2012Q1

REPORT INFORMATION
  Report Type: 
  Country: None (occurrence: None)
  Receive Date: 20120313
  Receipt Date: 20120308
  Transmission Date: 20120608
  Serious: Yes (Death, Other)
  Sender: FDA-Public Use
  Company Number: PHHY2011JP45556

PATIENT
  Sex: Female

DRUGS (4)
  1. ZOMETA [Suspect]
     Indication: METASTASES TO BONE
     Dates: start: 20060101
  2. RISEDRONATE SODIUM [Suspect]
     Route: 048
     Dates: start: 20100201
  3. AREDIA [Suspect]
     Indication: METASTASES TO BONE
     Route: 041
     Dates: start: 20050201
  4. PREDNISOLONE [Concomitant]
     Dosage: UNK
     Dates: start: 20100201

REACTIONS (8)
  - ORAL DISORDER [None]
  - NEOPLASM MALIGNANT [None]
  - OSTEONECROSIS OF JAW [None]
  - EXPOSED BONE IN JAW [None]
  - FISTULA [None]
  - IMPLANT SITE INFLAMMATION [None]
  - NEOPLASM PROGRESSION [None]
  - PAIN [None]
